FAERS Safety Report 6212230-7 (Version None)
Quarter: 2009Q2

REPORT INFORMATION
  Report Type: 
  Country: None (occurrence: None)
  Receive Date: 20090529
  Receipt Date: 20090512
  Transmission Date: 20091009
  Serious: Yes (Death)
  Sender: FDA-Public Use
  Company Number: JPI-P-007188

PATIENT
  Age: 79 Year
  Sex: Female

DRUGS (3)
  1. XYREM [Suspect]
     Indication: NARCOLEPSY
     Dosage: 3 GM, (3 GM, 1 IN 1 D), ORAL; 1.5 GM (1.5 GM, 1 IN 1 D) ORAL
     Route: 048
     Dates: start: 20080731
  2. XYREM [Suspect]
     Indication: NARCOLEPSY
     Dosage: 3 GM, (3 GM, 1 IN 1 D), ORAL; 1.5 GM (1.5 GM, 1 IN 1 D) ORAL
     Route: 048
     Dates: start: 20080731
  3. UNSPECIFIED NARCOLEPSY MEDICATION [Concomitant]

REACTIONS (1)
  - LEUKAEMIA [None]
